FAERS Safety Report 10149276 (Version 1)
Quarter: 2014Q2

REPORT INFORMATION
  Report Type: Spontaneous
  Country: GB (occurrence: GB)
  Receive Date: 20140502
  Receipt Date: 20140502
  Transmission Date: 20141212
  Serious: Yes (Other)
  Sender: FDA-Public Use
  Company Number: GB-TEVA-477810ISR

PATIENT
  Age: 28 Year
  Sex: Female

DRUGS (13)
  1. AZITHROMYCIN [Suspect]
     Indication: TUBERCULOSIS
     Route: 065
  2. PROTIONAMIDE [Suspect]
     Indication: TUBERCULOSIS
     Route: 065
  3. CYCLOSERINE [Suspect]
     Indication: TUBERCULOSIS
     Route: 065
  4. LINEZOLID [Suspect]
     Indication: TUBERCULOSIS
     Route: 065
  5. AMINOSALICYLIC ACID [Suspect]
     Indication: TUBERCULOSIS
     Route: 065
  6. PYRAZINAMIDE [Concomitant]
     Indication: TUBERCULOSIS
     Route: 065
     Dates: start: 201105
  7. MOXIFLOXACIN [Concomitant]
     Indication: TUBERCULOSIS
     Route: 065
  8. AMIKACIN [Concomitant]
     Indication: TUBERCULOSIS
     Route: 065
  9. MEROPENEM [Concomitant]
     Indication: TUBERCULOSIS
     Route: 065
  10. CO-AMOXICLAV [Concomitant]
     Indication: TUBERCULOSIS
     Route: 065
  11. BEDAQUILINE [Concomitant]
     Indication: TUBERCULOSIS
     Dosage: 400 MILLIGRAM DAILY;
     Route: 065
     Dates: start: 201108
  12. BEDAQUILINE [Concomitant]
     Dosage: 200 MILLIGRAM DAILY;
     Dates: start: 2011
  13. PYRIDOXINE [Concomitant]
     Dosage: HIGH-DOSE
     Route: 065

REACTIONS (3)
  - Secondary hypothyroidism [Unknown]
  - Neuropathy peripheral [Unknown]
  - Nausea [Unknown]
